FAERS Safety Report 22271690 (Version 3)
Quarter: 2024Q1

REPORT INFORMATION
  Report Type: Spontaneous
  Country: RU (occurrence: RU)
  Receive Date: 20230502
  Receipt Date: 20240308
  Transmission Date: 20240409
  Serious: Yes (Other)
  Sender: FDA-Public Use
  Company Number: RU-009507513-2304RUS003066

PATIENT
  Age: 29 Year
  Sex: Male

DRUGS (2)
  1. ISENTRESS [Suspect]
     Active Substance: RALTEGRAVIR POTASSIUM
     Indication: HIV infection
     Dosage: 400 MILLIGRAM, BID
     Route: 048
  2. DELSTRIGO [Suspect]
     Active Substance: DORAVIRINE\LAMIVUDINE\TENOFOVIR DISOPROXIL FUMARATE
     Indication: HIV infection
     Dosage: UNK
     Route: 048

REACTIONS (9)
  - Gynaecomastia [Not Recovered/Not Resolved]
  - Erectile dysfunction [Unknown]
  - Nephrolithiasis [Not Recovered/Not Resolved]
  - Hormone level abnormal [Unknown]
  - Prostatic adenoma [Unknown]
  - Androgenetic alopecia [Unknown]
  - Breast enlargement [Unknown]
  - Emotional distress [Unknown]
  - Renal scan abnormal [Unknown]

NARRATIVE: CASE EVENT DATE: 20230101
